FAERS Safety Report 18452011 (Version 1)
Quarter: 2020Q4

REPORT INFORMATION
  Report Type: Spontaneous
  Country: US (occurrence: US)
  Receive Date: 20201030
  Receipt Date: 20201030
  Transmission Date: 20210114
  Serious: Yes (Hospitalization)
  Sender: FDA-Public Use
  Company Number: None

PATIENT
  Age: 76 Year
  Sex: Female

DRUGS (16)
  1. SYNVISC [Suspect]
     Active Substance: HYLAN G-F 20
     Indication: RHEUMATOID ARTHRITIS
     Route: 014
     Dates: start: 20171020
  2. RANITIDINE. [Concomitant]
     Active Substance: RANITIDINE
  3. METFORMIN [Concomitant]
     Active Substance: METFORMIN HYDROCHLORIDE
  4. BIOTIN [Concomitant]
     Active Substance: BIOTIN
  5. CRANBERRY. [Concomitant]
     Active Substance: CRANBERRY
  6. OMEPRAZOLE. [Concomitant]
     Active Substance: OMEPRAZOLE
  7. POTASSIUM [Concomitant]
     Active Substance: POTASSIUM
  8. ATENOLOL. [Concomitant]
     Active Substance: ATENOLOL
  9. IRON [Concomitant]
     Active Substance: IRON
  10. ATORVASTATIN [Concomitant]
     Active Substance: ATORVASTATIN
  11. ALPHA LIPOID [Concomitant]
  12. FOLIC ACID. [Concomitant]
     Active Substance: FOLIC ACID
  13. ASPIRIN. [Concomitant]
     Active Substance: ASPIRIN
  14. LOSARTAN. [Concomitant]
     Active Substance: LOSARTAN
  15. NIACIN. [Concomitant]
     Active Substance: NIACIN
  16. SYNTHROID [Concomitant]
     Active Substance: LEVOTHYROXINE SODIUM

REACTIONS (2)
  - Limb operation [None]
  - Neuralgia [None]

NARRATIVE: CASE EVENT DATE: 20201005
